FAERS Safety Report 7039685-2 (Version None)
Quarter: 2010Q4

REPORT INFORMATION
  Report Type: 
  Country: None (occurrence: None)
  Receive Date: 20101012
  Receipt Date: 20101011
  Transmission Date: 20110411
  Serious: Yes (Hospitalization)
  Sender: FDA-Public Use
  Company Number: DE-WYE-G06791610

PATIENT
  Sex: Male
  Weight: 82 kg

DRUGS (1)
  1. TORISEL [Suspect]
     Indication: MANTLE CELL LYMPHOMA
     Route: 042
     Dates: start: 20100927, end: 20101004

REACTIONS (3)
  - LEUKOCYTOSIS [None]
  - MOUTH HAEMORRHAGE [None]
  - THROMBOCYTOPENIA [None]
